FAERS Safety Report 5332874-4 (Version None)
Quarter: 2007Q2

REPORT INFORMATION
  Report Type: 
  Country: None (occurrence: None)
  Receive Date: 20070521
  Receipt Date: 20070502
  Transmission Date: 20071010
  Serious: Yes (Death)
  Sender: FDA-Public Use
  Company Number: DAV-AE-ACY-07-014

PATIENT
  Age: 28 Year
  Sex: Female

DRUGS (1)
  1. ACYCLOVIR [Suspect]
     Indication: ENCEPHALITIS

REACTIONS (2)
  - GRAFT VERSUS HOST DISEASE [None]
  - NO THERAPEUTIC RESPONSE [None]
